FAERS Safety Report 9405330 (Version 1)
Quarter: 2013Q3

REPORT INFORMATION
  Report Type: Spontaneous
  Country: GB (occurrence: GB)
  Receive Date: 20130717
  Receipt Date: 20130717
  Transmission Date: 20140515
  Serious: Yes (Other)
  Sender: FDA-Public Use
  Company Number: GB-JNJFOC-20130706767

PATIENT
  Sex: 0

DRUGS (2)
  1. INFLIXIMAB, RECOMBINANT [Suspect]
     Indication: RHEUMATOID ARTHRITIS
     Route: 042
  2. INFLIXIMAB, RECOMBINANT [Suspect]
     Indication: CROHN^S DISEASE
     Route: 042

REACTIONS (14)
  - Sepsis [Unknown]
  - Pneumocystis jirovecii pneumonia [Unknown]
  - Pneumonia haemophilus [Unknown]
  - Cellulitis [Unknown]
  - Herpes zoster [Unknown]
  - Urinary tract infection [Unknown]
  - Pneumonia influenzal [Unknown]
  - Pneumonia klebsiella [Unknown]
  - Pneumonia mycoplasmal [Unknown]
  - Disseminated tuberculosis [Unknown]
  - Pulmonary tuberculosis [Unknown]
  - Tuberculous pleurisy [Unknown]
  - Pneumonia [Unknown]
  - Tuberculosis [Unknown]
